FAERS Safety Report 21581231 (Version 1)
Quarter: 2022Q4

REPORT INFORMATION
  Report Type: Other
  Country: CA (occurrence: None)
  Receive Date: 20221111
  Receipt Date: 20221111
  Transmission Date: 20230113
  Serious: Yes (Other)
  Sender: FDA-Public Use
  Company Number: CA-ROCHE-3212865

PATIENT
  Sex: Male
  Weight: 24.7 kg

DRUGS (16)
  1. ACTEMRA [Suspect]
     Active Substance: TOCILIZUMAB
     Indication: Transplant rejection
     Dosage: DRUG DOSE FIRST ADMINISTERED IS 170 MG MILLIGRAM(S)
     Route: 042
     Dates: start: 20201029, end: 20201207
  2. ACTEMRA [Suspect]
     Active Substance: TOCILIZUMAB
     Dosage: DRUG DOSE FIRST ADMINISTERED IS 130 MG MILLIGRAM(S)
     Route: 042
     Dates: start: 20210112, end: 20210112
  3. ACTEMRA [Suspect]
     Active Substance: TOCILIZUMAB
     Dosage: DRUG DOSE FIRST ADMINISTERED IS 170 MG MILLIGRAM(S)
     Route: 042
     Dates: start: 20210208, end: 20210208
  4. ACTEMRA [Suspect]
     Active Substance: TOCILIZUMAB
     Dosage: DRUG DOSE FIRST ADMINISTERED IS 130 MG MILLIGRAM(S)
     Route: 042
     Dates: start: 20210308, end: 20210308
  5. ACTEMRA [Suspect]
     Active Substance: TOCILIZUMAB
     Dosage: DRUG DOSE FIRST ADMINISTERED IS 170 MG MILLIGRAM(S)
     Route: 042
     Dates: start: 20210408, end: 2021
  6. ACTEMRA [Suspect]
     Active Substance: TOCILIZUMAB
     Dosage: DRUG DOSE FIRST ADMINISTERED IS 200 MG MILLIGRAM(S)
     Route: 042
     Dates: start: 20211019, end: 20221005
  7. ACTEMRA [Suspect]
     Active Substance: TOCILIZUMAB
     Dosage: DRUG DOSE FIRST ADMINISTERED IS 220 MG MILLIGRAM(S)?MOREDOSAGEINFO IS B5006B12 31-JUL-2024
     Route: 042
     Dates: start: 20221102
  8. CELLCEPT [Suspect]
     Active Substance: MYCOPHENOLATE MOFETIL
     Indication: Product used for unknown indication
     Dosage: DRUG DOSE FIRST ADMINISTERED IS 200 MG MILLIGRAM(S)
     Route: 065
  9. AMLODIPINE [Concomitant]
     Active Substance: AMLODIPINE BESYLATE
     Dosage: DRUG DOSE FIRST ADMINISTERED IS 0.7 MG MILLIGRAM(S)
     Route: 065
  10. FAMOTIDINE [Concomitant]
     Active Substance: FAMOTIDINE
     Dosage: DRUG DOSE FIRST ADMINISTERED IS 8 MG MILLIGRAM(S)
     Route: 065
  11. FERROUS SULFATE [Concomitant]
     Active Substance: FERROUS SULFATE
     Dosage: DRUG DOSE FIRST ADMINISTERED IS 60 MG MILLIGRAM(S)
     Route: 065
  12. MAGNESIUM [Concomitant]
     Active Substance: MAGNESIUM
     Dosage: DRUG DOSE FIRST ADMINISTERED IS 120 MG MILLIGRAM(S)
  13. PREDNISONE [Concomitant]
     Active Substance: PREDNISONE
     Dosage: DRUG DOSE FIRST ADMINISTERED IS 3 MG MILLIGRAM(S)
  14. SEPTRA [Concomitant]
     Active Substance: SULFAMETHOXAZOLE\TRIMETHOPRIM
     Dosage: DRUG DOSE FIRST ADMINISTERED IS 28 MG MILLIGRAM(S)
  15. TACROLIMUS [Concomitant]
     Active Substance: TACROLIMUS
     Dosage: DRUG DOSE FIRST ADMINISTERED IS 2.1 MG MILLIGRAM(S)
  16. VALCYTE [Concomitant]
     Active Substance: VALGANCICLOVIR HYDROCHLORIDE
     Dosage: DRUG DOSE FIRST ADMINISTERED IS 530 MG MILLIGRAM(S)

REACTIONS (1)
  - Weight increased [Unknown]
